FAERS Safety Report 6719330-3 (Version None)
Quarter: 2010Q2

REPORT INFORMATION
  Report Type: 
  Country: None (occurrence: None)
  Receive Date: 20100511
  Receipt Date: 20100504
  Transmission Date: 20101027
  Serious: Yes (Hospitalization)
  Sender: FDA-Public Use
  Company Number: PHHO2010TR02627

PATIENT
  Sex: Male
  Weight: 80 kg

DRUGS (5)
  1. AFINITOR [Suspect]
     Indication: METASTATIC RENAL CELL CARCINOMA
     Dosage: 10MG
     Route: 048
     Dates: start: 20091215, end: 20100215
  2. AFINITOR [Suspect]
     Dosage: NO TREATMENT
     Route: 048
     Dates: start: 20100215, end: 20100217
  3. AFINITOR [Suspect]
     Dosage: UNK
     Route: 048
     Dates: start: 20100218
  4. PARACETAMOL [Concomitant]
     Dosage: UNK
     Dates: start: 20100217
  5. HYOSCINE HBR HYT [Concomitant]
     Dosage: UNK

REACTIONS (4)
  - ABDOMINAL PAIN [None]
  - DIARRHOEA [None]
  - GASTROENTERITIS RADIATION [None]
  - RECALL PHENOMENON [None]
